FAERS Safety Report 21941771 (Version 1)
Quarter: 2023Q1

REPORT INFORMATION
  Report Type: Report from Study
  Country: RO (occurrence: RO)
  Receive Date: 20230202
  Receipt Date: 20230202
  Transmission Date: 20230417
  Serious: Yes (Hospitalization)
  Sender: FDA-Public Use
  Company Number: RO-ABBVIE-4290646

PATIENT
  Age: 42 Year
  Sex: Male

DRUGS (4)
  1. GLECAPREVIR\PIBRENTASVIR [Suspect]
     Active Substance: GLECAPREVIR\PIBRENTASVIR
     Indication: Hepatic cirrhosis
     Dosage: 300 MG/120 MG
     Route: 048
     Dates: start: 20220920, end: 20221115
  2. NORVASC [Concomitant]
     Active Substance: AMLODIPINE BESYLATE
     Indication: Hypertension
     Dosage: 1 TABLET?START DATE TEXT: PRIOR TO MAVIRET THERAPY
     Route: 048
  3. METOPROLOL [Concomitant]
     Active Substance: METOPROLOL
     Indication: Hypertension
     Dosage: 1 TABLET?START DATE TEXT: PRIOR TO MAVIRET THERAPY
     Route: 048
  4. Essentiale [Concomitant]
     Indication: Product used for unknown indication
     Dosage: 3 TABLET?START DATE TEXT: PRIOR TO MAVIRET THERAPY
     Route: 048

REACTIONS (4)
  - Hepatitis A [Not Recovered/Not Resolved]
  - Insomnia [Recovered/Resolved]
  - Constipation [Recovered/Resolved]
  - Headache [Recovered/Resolved]

NARRATIVE: CASE EVENT DATE: 20221201
